FAERS Safety Report 10298450 (Version 2)
Quarter: 2014Q3

REPORT INFORMATION
  Report Type: Spontaneous
  Country: US (occurrence: US)
  Receive Date: 20140711
  Receipt Date: 20140711
  Transmission Date: 20150326
  Serious: No
  Sender: FDA-Public Use
  Company Number: US-GILEAD-2013-0082285

PATIENT
  Sex: Female

DRUGS (2)
  1. LETAIRIS [Suspect]
     Active Substance: AMBRISENTAN
     Indication: PRODUCT USED FOR UNKNOWN INDICATION
     Dosage: 5 MG, QD
     Dates: start: 20130627
  2. LETAIRIS [Suspect]
     Active Substance: AMBRISENTAN
     Dates: start: 20101020

REACTIONS (3)
  - Blood pressure decreased [Unknown]
  - Asthenia [Unknown]
  - Feeling abnormal [Unknown]
